FAERS Safety Report 23322865 (Version 4)
Quarter: 2024Q1

REPORT INFORMATION
  Report Type: Spontaneous
  Country: US (occurrence: US)
  Receive Date: 20231220
  Receipt Date: 20240315
  Transmission Date: 20240410
  Serious: No
  Sender: FDA-Public Use
  Company Number: US-Blueprint Medicines Corporation-1826

PATIENT
  Sex: Female

DRUGS (1)
  1. AYVAKIT [Suspect]
     Active Substance: AVAPRITINIB
     Indication: Haematopoietic neoplasm
     Route: 065
     Dates: start: 20231203

REACTIONS (5)
  - Thinking abnormal [Unknown]
  - Brain fog [Unknown]
  - Keratosis follicular [Unknown]
  - Constipation [Unknown]
  - Symptom recurrence [Unknown]
